FAERS Safety Report 4354415-0 (Version None)
Quarter: 2004Q2

REPORT INFORMATION
  Report Type: 
  Country: None (occurrence: None)
  Receive Date: 20040503
  Receipt Date: 20031103
  Transmission Date: 20050107
  Serious: Yes (Life-Threatening, Hospitalization)
  Sender: FDA-Public Use
  Company Number: PHEH2003US09201

PATIENT
  Age: 74 Year
  Sex: Female
  Weight: 70.7 kg

DRUGS (9)
  1. LOTREL [Suspect]
     Indication: HYPERTENSION
     Dosage: 5 MG AMLOD/10 MG BENAZ
     Dates: start: 20030901, end: 20030925
  2. LOPRESSOR [Concomitant]
  3. POTASSIUM CHLORIDE [Concomitant]
  4. NEXIUM [Concomitant]
  5. LORTAB [Concomitant]
  6. PANCREASE [Concomitant]
  7. LESCOL [Concomitant]
  8. LABETALOL HCL [Concomitant]
  9. HYDROCHLOROTHIAZIDE [Concomitant]

REACTIONS (7)
  - ABDOMINAL PAIN [None]
  - ASTHENIA [None]
  - HYPOTENSION [None]
  - NAUSEA [None]
  - PANCREATITIS ACUTE [None]
  - VOLUME BLOOD DECREASED [None]
  - VOMITING [None]
